FAERS Safety Report 17928061 (Version 1)
Quarter: 2020Q2

REPORT INFORMATION
  Report Type: Spontaneous
  Country: CN (occurrence: CN)
  Receive Date: 20200623
  Receipt Date: 20200623
  Transmission Date: 20200714
  Serious: Yes (Other)
  Sender: FDA-Public Use
  Company Number: CN-GLAXOSMITHKLINE-CN2020APC104700

PATIENT
  Age: 37 Year
  Sex: Female
  Weight: 62 kg

DRUGS (2)
  1. VENTOLIN [Suspect]
     Active Substance: ALBUTEROL SULFATE
     Indication: TONSILLITIS
     Dosage: 5 MG, QD
     Route: 055
     Dates: start: 20200616, end: 20200616
  2. PULMICORT RESPULES [Concomitant]
     Active Substance: BUDESONIDE
     Indication: TONSILLITIS
     Dosage: 1 MG, QD
     Route: 055
     Dates: start: 20200616, end: 20200616

REACTIONS (5)
  - Tremor [Recovered/Resolved]
  - Paralysis [Recovered/Resolved]
  - Hypoaesthesia [Recovered/Resolved]
  - Muscle spasms [Recovered/Resolved]
  - Muscular weakness [Recovered/Resolved]

NARRATIVE: CASE EVENT DATE: 20200616
